FAERS Safety Report 20052585 (Version 3)
Quarter: 2021Q4

REPORT INFORMATION
  Report Type: Report from Study
  Country: SK (occurrence: SK)
  Receive Date: 20211110
  Receipt Date: 20211125
  Transmission Date: 20220303
  Serious: Yes (Life-Threatening, Hospitalization)
  Sender: FDA-Public Use
  Company Number: SK-NOVARTISPH-NVSC2021SK234004

PATIENT
  Age: 69 Year
  Sex: Female
  Weight: 70 kg

DRUGS (4)
  1. ALPELISIB [Suspect]
     Active Substance: ALPELISIB
     Indication: Triple negative breast cancer
     Dosage: CODE NOT BROKEN
     Route: 065
     Dates: start: 20210930, end: 20211009
  2. INVESTIGATIONAL PRODUCT [Suspect]
     Active Substance: INVESTIGATIONAL PRODUCT
     Indication: Triple negative breast cancer
     Dosage: CODE NOT BROKEN
     Route: 065
     Dates: start: 20210930, end: 20211009
  3. PLACEBO [Suspect]
     Active Substance: UNSPECIFIED INGREDIENT
     Indication: Triple negative breast cancer
     Dosage: CODE NOT BROKEN
     Route: 065
     Dates: start: 20210930, end: 20211009
  4. PACLITAXEL [Suspect]
     Active Substance: PACLITAXEL
     Indication: Triple negative breast cancer
     Dosage: 173 MG, ONCE/SINGLE
     Route: 042
     Dates: start: 20210930, end: 20211007

REACTIONS (1)
  - Diarrhoea [Not Recovered/Not Resolved]

NARRATIVE: CASE EVENT DATE: 20211007
